FAERS Safety Report 5875212-0 (Version None)
Quarter: 2008Q3

REPORT INFORMATION
  Report Type: 
  Country: None (occurrence: None)
  Receive Date: 20080909
  Receipt Date: 20080828
  Transmission Date: 20090109
  Serious: Yes (Disabling)
  Sender: FDA-Public Use
  Company Number: US-SANOFI-SYNTHELABO-A03200602091

PATIENT
  Sex: Female
  Weight: 90.7 kg

DRUGS (87)
  1. AMBIEN [Suspect]
     Indication: INSOMNIA
     Dosage: TAKES 1 1/2 TABLETS OF 10 MG
     Route: 048
     Dates: start: 19990101, end: 20060516
  2. AMBIEN [Suspect]
     Dosage: 5 MG OF ZOLPIDEM AND 10 MG OF ZOLPIDEM (15 MG NIGHTLY)
     Route: 048
  3. CYMBALTA [Concomitant]
     Indication: DRUG USE FOR UNKNOWN INDICATION
     Route: 048
  4. PROVIGIL [Concomitant]
     Indication: DRUG USE FOR UNKNOWN INDICATION
     Dosage: 100 MG EVERY MORNING
     Route: 065
  5. VIVELLE-DOT [Concomitant]
     Indication: DRUG USE FOR UNKNOWN INDICATION
     Dosage: 0.075 MG PATCH Q2WKS
     Route: 061
  6. GLUCOSAMINE CHONDROITIN [Concomitant]
     Indication: OSTEOARTHRITIS
     Dosage: UNK
     Route: 048
     Dates: start: 20060806
  7. NEXIUM [Concomitant]
     Indication: DRUG USE FOR UNKNOWN INDICATION
     Dosage: 40 MG EVERY MORNING IN THE MORNING
     Route: 048
     Dates: start: 20070717
  8. PROMETRIUM [Concomitant]
     Indication: DRUG USE FOR UNKNOWN INDICATION
     Route: 048
  9. TRICOR [Concomitant]
     Indication: HYPERTRIGLYCERIDAEMIA
     Dosage: UNK
     Route: 048
  10. PROTONIX [Concomitant]
     Indication: GASTROOESOPHAGEAL REFLUX DISEASE
     Route: 048
     Dates: start: 20070709
  11. HYDROCHLOROTHIAZIDE [Concomitant]
     Indication: DRUG USE FOR UNKNOWN INDICATION
     Route: 048
     Dates: start: 20061110
  12. NAPROSYN [Concomitant]
     Indication: DRUG USE FOR UNKNOWN INDICATION
     Route: 048
     Dates: start: 20061006
  13. CLONIDINE [Concomitant]
     Indication: DRUG USE FOR UNKNOWN INDICATION
     Route: 061
     Dates: end: 20060901
  14. LYRICA [Concomitant]
     Indication: PAIN
     Dosage: UNK
     Route: 048
  15. MOBIC [Concomitant]
     Indication: PAIN
     Route: 048
  16. MOBIC [Concomitant]
     Indication: FIBROMYALGIA
     Route: 048
  17. REQUIP [Concomitant]
     Indication: RESTLESS LEGS SYNDROME
     Route: 048
  18. ATENOLOL [Concomitant]
     Indication: HYPERTENSION
     Route: 048
  19. ATENOLOL [Concomitant]
     Route: 048
  20. ASTELIN [Concomitant]
     Indication: SINUSITIS
     Route: 045
  21. ASTELIN [Concomitant]
     Indication: RHINITIS ALLERGIC
     Route: 045
  22. CLARINEX [Concomitant]
     Indication: SINUSITIS
     Route: 048
     Dates: start: 20060516
  23. CALCIUM VITAMIN D [Concomitant]
     Indication: DRUG USE FOR UNKNOWN INDICATION
     Dosage: UNK
     Route: 048
  24. SINGULAIR [Concomitant]
     Indication: RHINITIS ALLERGIC
     Route: 048
  25. PATANOL [Concomitant]
     Indication: DRUG USE FOR UNKNOWN INDICATION
     Route: 047
  26. RHINOCORT [Concomitant]
     Indication: DRUG USE FOR UNKNOWN INDICATION
     Dosage: UNK
     Route: 065
  27. NASACORT AQ [Concomitant]
     Indication: RHINITIS ALLERGIC
     Dosage: UNK
     Route: 045
  28. LORTAB [Concomitant]
     Indication: FIBROMYALGIA
     Dosage: 10/500 MG EVERY 4 HOURS AS NEEDED
     Route: 048
  29. LORTAB [Concomitant]
     Dosage: 7.5/500 MG 1 TABLET BY MOUTH EVERY 4 HOURS AS NEEDED
  30. LEXAPRO [Concomitant]
     Indication: DEPRESSION
     Dosage: UNK
     Route: 048
     Dates: start: 20071102
  31. PREMARIN [Concomitant]
     Indication: DRUG USE FOR UNKNOWN INDICATION
     Route: 048
  32. PREMARIN [Concomitant]
     Dosage: UNK
     Route: 048
  33. PREMARIN [Concomitant]
     Route: 065
  34. KLONOPIN [Concomitant]
     Indication: RESTLESS LEGS SYNDROME
     Route: 048
  35. KLONOPIN [Concomitant]
     Dosage: ONE HALF TABLET THREE TIMES A DAY AND 1 TABLET BY MOUTH AT BEDTIME
     Route: 065
  36. KLONOPIN [Concomitant]
     Route: 048
  37. ZYRTEC [Concomitant]
     Indication: DRUG USE FOR UNKNOWN INDICATION
     Route: 048
  38. MACROBID [Concomitant]
     Indication: DRUG USE FOR UNKNOWN INDICATION
     Route: 048
  39. ENABLEX [Concomitant]
     Indication: URINARY INCONTINENCE
     Dosage: UNK
     Route: 065
  40. VESICARE [Concomitant]
     Indication: MIXED INCONTINENCE
     Dosage: UNK
     Route: 048
  41. LEVAQUIN [Concomitant]
     Indication: URINARY TRACT INFECTION
     Route: 048
     Dates: start: 20060701, end: 20060701
  42. DARVOCET-N 100 [Concomitant]
     Indication: DRUG USE FOR UNKNOWN INDICATION
     Dosage: ONE TABLET EVERY 6 HOURS AS NEEDED
     Route: 065
  43. WELLBUTRIN [Concomitant]
     Indication: DRUG USE FOR UNKNOWN INDICATION
     Route: 065
  44. PEPCID [Concomitant]
     Indication: DRUG USE FOR UNKNOWN INDICATION
     Route: 065
  45. ULTRACET [Concomitant]
     Indication: DRUG USE FOR UNKNOWN INDICATION
     Dosage: UNK
     Route: 065
  46. DIOVAN [Concomitant]
     Dosage: UNK
     Route: 065
  47. CYCLOBENZAPRINE HCL [Concomitant]
     Dosage: USE AS DIRECTED
     Route: 065
  48. PYRIDOXINE HYDROCHLORIDE [Concomitant]
     Dosage: INJECT AS DIRECTED
     Route: 065
  49. CYANOCOBALAMIN [Concomitant]
     Dosage: INJECT AS DIRECTED
     Route: 065
  50. SONATA [Concomitant]
     Route: 065
  51. DORAL [Concomitant]
     Route: 065
  52. REMERON [Concomitant]
     Route: 065
  53. PATANOL [Concomitant]
     Dosage: INSTILL INTO EYES BID
     Route: 047
  54. ULTRAM [Concomitant]
     Route: 065
  55. ROXICET [Concomitant]
     Dosage: ONE TABLET BY MOUTH EVERY 4 TO 6 HOURS AS NEEDED FOR PAIN
     Route: 065
  56. PHENERGAN HCL [Concomitant]
     Dosage: UNK
     Route: 054
  57. CEFTIN [Concomitant]
     Route: 065
  58. PROMETHAZINE W/ CODEINE [Concomitant]
     Dosage: EVERY 8 HOURS AS NEEDED
     Route: 048
  59. PAXIL [Concomitant]
     Dosage: UNK
     Route: 065
  60. CEFACLOR [Concomitant]
     Route: 065
  61. PRILOSEC [Concomitant]
     Route: 065
  62. PHENTERMINE [Concomitant]
     Route: 065
  63. CLARITIN [Concomitant]
     Route: 065
  64. HEMORROIDAL RECTAL SUPPOSITORY [Concomitant]
     Dosage: UNK
     Route: 054
  65. DIFLUCAN [Concomitant]
     Dosage: UNK
     Route: 065
  66. XENICAL [Concomitant]
     Dosage: ONE CAPSULE BY MOUTH WITH EACH MEAL
     Route: 065
  67. CEPHALEXIN [Concomitant]
     Dosage: 4 CAP 1 HOUR PRIOR TO APPOINTMENT
     Route: 065
  68. FLONASE [Concomitant]
     Dosage: USE 2 SPRAYS IN EACH NOSTRIL QD PRN
     Route: 045
  69. DIPHENHYDRAMINE HCL [Concomitant]
     Dosage: 1 CAPSULE AT 13 HOUR, 7 HOUR, AND 1 HOUR PRIOR TO EXAM UNK
     Route: 065
  70. CIMETIDINE [Concomitant]
     Dosage: UNK
     Route: 065
  71. ALPRAZOLAM [Concomitant]
     Route: 065
  72. ACETAMINOPHEN AND CODEINE #4 [Concomitant]
     Dosage: UNK
     Route: 065
  73. TEMAZEPAM [Concomitant]
     Route: 065
  74. ALLEGRA [Concomitant]
     Route: 065
  75. BETAMETHASONE [Concomitant]
     Dosage: APPLY TO AFFECTED AREA AS DIRECTED
     Route: 065
  76. DOXYCYCLINE [Concomitant]
     Route: 065
  77. ANUCORT [Concomitant]
     Route: 054
  78. ALBUTEROL [Concomitant]
     Dosage: UNK
     Route: 065
  79. HYDROCODONE BITARTRATE [Concomitant]
     Dosage: UNK UNK
     Route: 045
  80. MUCINEX [Concomitant]
     Dosage: UNK UNK
     Route: 065
  81. PREDNISONE TAB [Concomitant]
     Dosage: UNK
     Route: 065
  82. PREDNISONE TAB [Concomitant]
     Dosage: UNK
     Route: 065
  83. PREDNISONE TAB [Concomitant]
     Dosage: UNK
     Route: 065
  84. CLARITHROMYCIN [Concomitant]
     Dosage: UNK
     Route: 065
  85. SILVER SULFADIAZINE [Concomitant]
     Indication: DRUG USE FOR UNKNOWN INDICATION
     Dosage: APPLY BID
     Route: 065
  86. AZITHROMYCIN [Concomitant]
     Indication: DRUG USE FOR UNKNOWN INDICATION
     Dosage: USE AS DIRECTED
     Route: 065
  87. ZOLPIDEM [Suspect]
     Dosage: UNK
     Route: 065

REACTIONS (28)
  - AMNESIA [None]
  - ARTHRALGIA [None]
  - BACK PAIN [None]
  - BURSITIS [None]
  - DEPENDENCE [None]
  - DRUG ABUSE [None]
  - DRUG INEFFECTIVE [None]
  - DRUG WITHDRAWAL SYNDROME [None]
  - EATING DISORDER [None]
  - FALL [None]
  - FATIGUE [None]
  - GAIT DISTURBANCE [None]
  - HALLUCINATION [None]
  - IMPAIRED DRIVING ABILITY [None]
  - INTENTIONAL DRUG MISUSE [None]
  - JOINT INJURY [None]
  - MENISCUS LESION [None]
  - MUSCLE INJURY [None]
  - MUSCLE SPASMS [None]
  - OEDEMA PERIPHERAL [None]
  - PAIN [None]
  - SKELETAL INJURY [None]
  - SLEEP TALKING [None]
  - SOMNAMBULISM [None]
  - SOMNOLENCE [None]
  - TENDON INJURY [None]
  - TENDONITIS [None]
  - WEIGHT INCREASED [None]
